FAERS Safety Report 15427279 (Version 10)
Quarter: 2019Q3

REPORT INFORMATION
  Report Type: Spontaneous
  Country: US (occurrence: US)
  Receive Date: 20180925
  Receipt Date: 20190909
  Transmission Date: 20191004
  Serious: Yes (Hospitalization)
  Sender: FDA-Public Use
  Company Number: US-ACTELION-A-NJ2018-179252

PATIENT
  Age: 63 Year
  Sex: Male
  Weight: 94.33 kg

DRUGS (19)
  1. OXYGEN. [Concomitant]
     Active Substance: OXYGEN
     Dosage: UNK
     Dates: start: 201501
  2. APIXABAN [Concomitant]
     Active Substance: APIXABAN
  3. UPTRAVI [Suspect]
     Active Substance: SELEXIPAG
     Dosage: 1200 MCG QAM, 1000 MCG QPM
     Route: 048
  4. TIOTROPIUM [Concomitant]
     Active Substance: TIOTROPIUM
     Dosage: UNK
     Dates: start: 201809
  5. UPTRAVI [Suspect]
     Active Substance: SELEXIPAG
     Dosage: 800 MCG, BID
     Route: 048
     Dates: start: 20180201
  6. CEPHALEXIN. [Concomitant]
     Active Substance: CEPHALEXIN
  7. UPTRAVI [Suspect]
     Active Substance: SELEXIPAG
     Dosage: UNK
     Route: 048
     Dates: start: 20180201
  8. LETAIRIS [Concomitant]
     Active Substance: AMBRISENTAN
     Dosage: UNK
     Dates: start: 20180201
  9. METOLAZONE. [Concomitant]
     Active Substance: METOLAZONE
     Dosage: UNK
     Dates: start: 20171219
  10. ELIQUIS [Concomitant]
     Active Substance: APIXABAN
  11. UPTRAVI [Suspect]
     Active Substance: SELEXIPAG
     Indication: PULMONARY ARTERIAL HYPERTENSION
     Dosage: 1200 MCG, BID
     Route: 048
  12. UPTRAVI [Suspect]
     Active Substance: SELEXIPAG
     Dosage: 1400 MCG, BID
     Route: 048
  13. SILDENAFIL CITRATE. [Concomitant]
     Active Substance: SILDENAFIL CITRATE
     Indication: PULMONARY ARTERIAL HYPERTENSION
     Dosage: UNK
     Dates: start: 201802
  14. ALBUTEROL. [Concomitant]
     Active Substance: ALBUTEROL
     Dosage: UNK
     Dates: start: 201809
  15. CLOBETASOL [Concomitant]
     Active Substance: CLOBETASOL
     Dosage: UNK, BID
     Route: 061
  16. FUROSEMIDE. [Concomitant]
     Active Substance: FUROSEMIDE
     Dosage: UNK
     Dates: start: 201705
  17. MULTAQ [Concomitant]
     Active Substance: DRONEDARONE
     Dosage: UNK
     Dates: start: 2016
  18. AMBRISENTAN [Concomitant]
     Active Substance: AMBRISENTAN
     Dosage: UNK
     Dates: start: 20180201
  19. CARVEDILOL. [Concomitant]
     Active Substance: CARVEDILOL
     Dosage: UNK
     Dates: start: 20150119

REACTIONS (26)
  - Arthralgia [Recovered/Resolved with Sequelae]
  - Streptococcal infection [Recovered/Resolved with Sequelae]
  - White blood cell count increased [Recovered/Resolved]
  - Fluid overload [Unknown]
  - Arthritis bacterial [Unknown]
  - Unevaluable event [Unknown]
  - Pulmonary embolism [Recovered/Resolved with Sequelae]
  - Vena cava filter insertion [Unknown]
  - Pericardial haemorrhage [Unknown]
  - Pleural effusion [Unknown]
  - Beta haemolytic streptococcal infection [Recovered/Resolved with Sequelae]
  - Blood creatinine increased [Recovered/Resolved]
  - Computerised tomogram coronary artery abnormal [Recovered/Resolved]
  - Dizziness [Unknown]
  - Pleuritic pain [Recovered/Resolved]
  - Nausea [Unknown]
  - Asthenia [Unknown]
  - Catheter placement [Recovered/Resolved with Sequelae]
  - Procedural complication [Recovered/Resolved with Sequelae]
  - Right ventricular failure [Not Recovered/Not Resolved]
  - Pericardial effusion [Unknown]
  - Oxygen saturation decreased [Unknown]
  - Weight decreased [Unknown]
  - Hip arthroplasty [Recovered/Resolved with Sequelae]
  - Deep vein thrombosis [Unknown]
  - Eczema [Unknown]

NARRATIVE: CASE EVENT DATE: 20180919
